FAERS Safety Report 7810855-6 (Version None)
Quarter: 2011Q4

REPORT INFORMATION
  Report Type: 
  Country: None (occurrence: None)
  Receive Date: 20111012
  Receipt Date: 20111012
  Transmission Date: 20120403
  Serious: Yes (Other)
  Sender: FDA-Public Use
  Company Number: None

PATIENT
  Sex: Female
  Weight: 62.1428 kg

DRUGS (6)
  1. TERBINAFINE HCL [Suspect]
     Indication: FUNGAL INFECTION
     Dosage: 250 MG DAILY ORAL
     Route: 048
     Dates: start: 20110629, end: 20110918
  2. ESTRACE [Concomitant]
  3. ALTACE [Concomitant]
  4. PROMETRIUM [Concomitant]
  5. ASPIRIN [Concomitant]
  6. XALATON [Concomitant]

REACTIONS (3)
  - OROPHARYNGEAL PAIN [None]
  - UPPER-AIRWAY COUGH SYNDROME [None]
  - CHOKING SENSATION [None]
